FAERS Safety Report 15997289 (Version 4)
Quarter: 2019Q3

REPORT INFORMATION
  Report Type: Report from Study
  Country: US (occurrence: US)
  Receive Date: 20190222
  Receipt Date: 20190919
  Transmission Date: 20191004
  Serious: Yes (Other)
  Sender: FDA-Public Use
  Company Number: PHHY2019US037662

PATIENT
  Age: 57 Year
  Sex: Female

DRUGS (6)
  1. ACETAMINOPHEN. [Concomitant]
     Active Substance: ACETAMINOPHEN
     Indication: NECK PAIN
     Route: 065
  2. CEPHALEXIN. [Concomitant]
     Active Substance: CEPHALEXIN
     Indication: PRODUCT USED FOR UNKNOWN INDICATION
     Route: 065
  3. ANCEF [Concomitant]
     Active Substance: CEFAZOLIN SODIUM
     Indication: PRODUCT USED FOR UNKNOWN INDICATION
     Route: 065
  4. GILENYA [Suspect]
     Active Substance: FINGOLIMOD HYDROCHLORIDE
     Indication: MULTIPLE SCLEROSIS
     Dosage: UNK UNK, QD
     Route: 048
  5. ACETAMINOPHEN. [Concomitant]
     Active Substance: ACETAMINOPHEN
     Indication: BACK PAIN
  6. BACITRACIN. [Concomitant]
     Active Substance: BACITRACIN
     Indication: SKIN GRAFT
     Route: 065

REACTIONS (10)
  - Atrioventricular block second degree [Unknown]
  - Cataract nuclear [Unknown]
  - Gastroenteritis [Recovered/Resolved]
  - Nail dystrophy [Unknown]
  - Melanocytic naevus [Unknown]
  - Procedural pain [Recovered/Resolved]
  - Hyperkeratosis [Recovered/Resolved]
  - Macular degeneration [Unknown]
  - Foot deformity [Unknown]
  - Procedural nausea [Recovered/Resolved]

NARRATIVE: CASE EVENT DATE: 20190103
